FAERS Safety Report 5382498-8 (Version None)
Quarter: 2007Q3

REPORT INFORMATION
  Report Type: 
  Country: None (occurrence: None)
  Receive Date: 20070702
  Receipt Date: 20070424
  Transmission Date: 20080115
  Serious: Yes (Other)
  Sender: FDA-Public Use
  Company Number: PROG00207032091

PATIENT
  Age: 32 Year
  Sex: Female
  Weight: 68 kg

DRUGS (3)
  1. PROMETRIUM [Suspect]
     Indication: PRENATAL CARE
     Dosage: 600 MILLIGRAM(S) DAILY VAGINAL DAILY DOSE: 600 MILLIGRAM(S); 200 MG EACH MORNING, 400 MG EACH NIGHT
     Route: 067
     Dates: start: 20060101, end: 20060901
  2. METFORMIN (METFORMIN) [Concomitant]
  3. LEVOTHROID [Concomitant]

REACTIONS (2)
  - ABORTION SPONTANEOUS [None]
  - INCORRECT ROUTE OF DRUG ADMINISTRATION [None]
